FAERS Safety Report 10409462 (Version 1)
Quarter: 2014Q2

REPORT INFORMATION
  Report Type: Spontaneous
  Country: US (occurrence: None)
  Receive Date: 20140604
  Receipt Date: 20140604
  Transmission Date: 20141212
  Serious: Yes (Other)
  Sender: FDA-Public Use
  Company Number: 163-POMAL-14024326

PATIENT
  Age: 70 Year
  Sex: Female
  Weight: 83 kg

DRUGS (20)
  1. POMALYST (POMALIDOMIDE) (4 MILLIGRAM, CAPSULES) [Suspect]
     Indication: PLASMA CELL MYELOMA
     Dosage: 4 MG, 21 IN 28 D, PO
     Route: 048
     Dates: start: 20130419
  2. DAPSONE [Concomitant]
  3. CALCIUM + VITAMIN D (LEKOVIT CA) [Concomitant]
  4. ENOXAPARIN [Concomitant]
  5. ACYCLOVIR (ACICLOVIR) (ACICLOVIR) [Concomitant]
  6. ATENOLOL [Concomitant]
  7. DILTIAZEM [Concomitant]
  8. NEXIUM (ESOMEPRAZOLE) [Concomitant]
  9. LISINOPRIL [Concomitant]
  10. DIGOXIN [Concomitant]
  11. LIPITOR (ATORVASTATIN) [Suspect]
  12. CENTRUM SILVER [Concomitant]
  13. DEXAMETHASONE [Concomitant]
  14. ARANSEP (DARBEPOETIN ALFA) [Concomitant]
  15. TIMOLOL [Concomitant]
  16. MIRALAX (MACROGOL) [Concomitant]
  17. ALPRAZOLAM [Concomitant]
  18. VENTOLIN (SALBUTAMOL) [Concomitant]
  19. CITRUCEL (METHYLCELLULOSE) [Concomitant]
  20. LUMIGAN (BIMATOPROST) [Concomitant]

REACTIONS (1)
  - Bronchitis [None]
